FAERS Safety Report 5108769-8 (Version None)
Quarter: 2006Q3

REPORT INFORMATION
  Report Type: 
  Country: None (occurrence: None)
  Receive Date: 20060918
  Receipt Date: 20060905
  Transmission Date: 20061208
  Serious: Yes (Hospitalization, Other)
  Sender: FDA-Public Use
  Company Number: 2006107737

PATIENT
  Age: 25 Year
  Sex: Male

DRUGS (3)
  1. DILANTIN [Suspect]
     Indication: EPILEPSY
     Dosage: 450 MG (PER DAY),
  2. ETHOSUXIMIDE [Suspect]
     Indication: EPILEPSY
  3. CLOBAZAM (CLOBAZAM) [Suspect]
     Indication: DRUG USE FOR UNKNOWN INDICATION
     Dosage: 5 MG,

REACTIONS (13)
  - ABASIA [None]
  - CEREBRAL ARTERY STENOSIS [None]
  - CEREBRAL ATROPHY [None]
  - COORDINATION ABNORMAL [None]
  - CSF PROTEIN INCREASED [None]
  - ELECTROENCEPHALOGRAM ABNORMAL [None]
  - EPILEPSY [None]
  - FACIAL PALSY [None]
  - GAIT DISTURBANCE [None]
  - HEMIPARESIS [None]
  - MUSCULAR WEAKNESS [None]
  - MYOCLONIC EPILEPSY [None]
  - PARAESTHESIA [None]
